FAERS Safety Report 6181940-2 (Version None)
Quarter: 2009Q2

REPORT INFORMATION
  Report Type: 
  Country: None (occurrence: None)
  Receive Date: 20090505
  Receipt Date: 20090424
  Transmission Date: 20091009
  Serious: Yes (Hospitalization)
  Sender: FDA-Public Use
  Company Number: CERZ-1000628

PATIENT
  Age: 62 Year
  Sex: Female

DRUGS (1)
  1. CEREZYME [Suspect]
     Indication: GAUCHER'S DISEASE
     Dosage: 60 U/KG, Q2W, INTRAVENOUS
     Route: 042
     Dates: start: 20071102

REACTIONS (10)
  - CHEST DISCOMFORT [None]
  - CONDITION AGGRAVATED [None]
  - FLUSHING [None]
  - INFUSION RELATED REACTION [None]
  - PARKINSONIAN REST TREMOR [None]
  - PSYCHOTIC DISORDER [None]
  - PYREXIA [None]
  - SLEEP DISORDER [None]
  - UNRESPONSIVE TO STIMULI [None]
  - WEIGHT INCREASED [None]
